FAERS Safety Report 10264713 (Version 1)
Quarter: 2014Q2

REPORT INFORMATION
  Report Type: Spontaneous
  Country: US (occurrence: US)
  Receive Date: 20140627
  Receipt Date: 20140627
  Transmission Date: 20141212
  Serious: Yes (Other)
  Sender: FDA-Public Use
  Company Number: US-ELI_LILLY_AND_COMPANY-US201406007306

PATIENT
  Sex: Female

DRUGS (2)
  1. FORTEO [Suspect]
     Indication: OSTEOPOROSIS
     Dosage: UNK, QD
     Route: 065
     Dates: start: 201301
  2. FORTEO [Suspect]
     Dosage: UNK, QD
     Route: 065
     Dates: end: 201405

REACTIONS (4)
  - Colon cancer [Unknown]
  - Hip fracture [Unknown]
  - Pelvic fracture [Unknown]
  - Impaired healing [Unknown]
